FAERS Safety Report 4868419-2 (Version None)
Quarter: 2005Q4

REPORT INFORMATION
  Report Type: 
  Country: None (occurrence: None)
  Receive Date: 20051229
  Receipt Date: 20051219
  Transmission Date: 20060501
  Serious: Yes (Life-Threatening, Hospitalization)
  Sender: FDA-Public Use
  Company Number: DE-BRISTOL-MYERS SQUIBB COMPANY-13227939

PATIENT
  Age: 40 Year
  Sex: Female

DRUGS (1)
  1. ERBITUX [Suspect]
     Indication: METASTASES TO BONE
     Route: 042
     Dates: start: 20051019

REACTIONS (8)
  - ABDOMINAL DISCOMFORT [None]
  - ANAPHYLACTIC REACTION [None]
  - CARDIOVASCULAR DISORDER [None]
  - CHILLS [None]
  - HYPOTENSION [None]
  - SOMNOLENCE [None]
  - TACHYCARDIA [None]
  - VOMITING [None]
